FAERS Safety Report 21231754 (Version 1)
Quarter: 2022Q3

REPORT INFORMATION
  Report Type: Spontaneous
  Country: NL (occurrence: NL)
  Receive Date: 20220819
  Receipt Date: 20220819
  Transmission Date: 20221027
  Serious: Yes (Other)
  Sender: FDA-Public Use
  Company Number: None

PATIENT
  Age: 20 Year
  Sex: Female

DRUGS (2)
  1. METOCLOPRAMIDE [Suspect]
     Active Substance: METOCLOPRAMIDE
     Indication: Nausea
     Dosage: 3 DOSAGE FORMS DAILY; 3 X A DAY 1 PIECE,  DURATION :1 DAY , BRAND NAME NOT SPECIFIED , STRENGTH  :10
     Route: 065
     Dates: start: 20220708, end: 20220709
  2. FLUOXETINE [Concomitant]
     Active Substance: FLUOXETINE HYDROCHLORIDE
     Indication: Product used for unknown indication
     Dosage: 20MG TABLETS , STRENGTH : 20MG  BRAND NAME NOT SPECIFIED, THERAPY START DATE : ASKU, THERAPY END DA

REACTIONS (2)
  - Facial paralysis [Recovered/Resolved]
  - Muscle spasms [Recovered/Resolved]

NARRATIVE: CASE EVENT DATE: 20220708
